FAERS Safety Report 7190913 (Version 4)
Quarter: 2013Q3

REPORT INFORMATION
  Report Type: Spontaneous
  Country: US (occurrence: US)
  Receive Date: 20091127
  Receipt Date: 20130813
  Transmission Date: 20140515
  Serious: Yes (Hospitalization)
  Sender: FDA-Public Use
  Company Number: US-BAYER-200940124NA

PATIENT
  Age: 14 Year
  Sex: Female
  Weight: 65.91 kg

DRUGS (2)
  1. YAZ [Suspect]
     Dosage: 1 DF, QD
     Route: 048
     Dates: start: 20090829, end: 20091114
  2. IBUPROFEN [Concomitant]
     Indication: CHEST PAIN

REACTIONS (9)
  - Pulmonary embolism [None]
  - Pulmonary infarction [None]
  - Chest pain [None]
  - Injury [None]
  - Pain [None]
  - General physical health deterioration [None]
  - Anxiety [None]
  - Emotional distress [None]
  - Anhedonia [None]
